FAERS Safety Report 10051748 (Version 1)
Quarter: 2014Q2

REPORT INFORMATION
  Report Type: Spontaneous
  Country: US (occurrence: US)
  Receive Date: 20140401
  Receipt Date: 20140401
  Transmission Date: 20141212
  Serious: Yes (Other)
  Sender: FDA-Public Use
  Company Number: US-JNJFOC-20140313142

PATIENT
  Age: 78 Year
  Sex: Male

DRUGS (5)
  1. TYLENOL UNSPECIFIED [Suspect]
     Route: 048
  2. TYLENOL UNSPECIFIED [Suspect]
     Indication: BACK DISORDER
     Route: 048
  3. FLEXERIL [Suspect]
     Indication: MUSCLE RELAXANT THERAPY
     Route: 065
  4. CELEBREX [Suspect]
     Indication: PRODUCT USED FOR UNKNOWN INDICATION
     Route: 065
  5. ADVIL [Suspect]
     Indication: BACK DISORDER
     Route: 065

REACTIONS (1)
  - Biliary cirrhosis primary [Unknown]
